FAERS Safety Report 5292547-3 (Version None)
Quarter: 2007Q2

REPORT INFORMATION
  Report Type: 
  Country: None (occurrence: None)
  Receive Date: 20070410
  Receipt Date: 20070330
  Transmission Date: 20071010
  Serious: Yes (Other)
  Sender: FDA-Public Use
  Company Number: US-PFIZER INC-2007026604

PATIENT
  Sex: Female
  Weight: 68 kg

DRUGS (5)
  1. CHANTIX [Suspect]
     Indication: EX-SMOKER
     Route: 048
  2. DEPAKOTE [Concomitant]
  3. LIBRIUM [Concomitant]
  4. NORTRIPTYLINE HCL [Concomitant]
  5. BUSPAR [Concomitant]

REACTIONS (2)
  - DEPRESSION [None]
  - SUICIDAL IDEATION [None]
